FAERS Safety Report 9110990 (Version 1)
Quarter: 2013Q1

REPORT INFORMATION
  Report Type: Spontaneous
  Country: US (occurrence: US)
  Receive Date: 20130219
  Receipt Date: 20130219
  Transmission Date: 20140127
  Serious: No
  Sender: FDA-Public Use
  Company Number: US-BRISTOL-MYERS SQUIBB COMPANY-16425605

PATIENT
  Age: 44 Year
  Sex: Female
  Weight: 87 kg

DRUGS (1)
  1. ORENCIA [Suspect]
     Indication: RHEUMATOID ARTHRITIS
     Dosage: FIRST ON 14FEB2012, THE SECOND ON 21FEB2012.
     Route: 058
     Dates: start: 20120214

REACTIONS (7)
  - Arthralgia [Unknown]
  - Joint swelling [Unknown]
  - Eye swelling [Unknown]
  - Dysgeusia [Unknown]
  - Weight decreased [Unknown]
  - Fluid retention [Unknown]
  - Hypertension [Unknown]
